FAERS Safety Report 7645285-3 (Version None)
Quarter: 2011Q3

REPORT INFORMATION
  Report Type: 
  Country: None (occurrence: None)
  Receive Date: 20110729
  Receipt Date: 20110720
  Transmission Date: 20111222
  Serious: Yes (Death, Hospitalization)
  Sender: FDA-Public Use
  Company Number: US-AMGEN-USASP2011036940

PATIENT
  Sex: Female

DRUGS (9)
  1. SENSIPAR [Suspect]
     Indication: HYPERPARATHYROIDISM SECONDARY
     Dosage: 60 MG, QD
     Dates: start: 20091009, end: 20101109
  2. WELCHOL [Concomitant]
  3. ZOLOFT [Concomitant]
  4. DILANTIN [Concomitant]
  5. XANAX [Concomitant]
  6. HYDROXYZINE HCL [Concomitant]
  7. NEURONTIN [Concomitant]
  8. ASPIRIN [Concomitant]
  9. NEPHROCAPS [Concomitant]

REACTIONS (2)
  - DEATH [None]
  - HOSPITALISATION [None]
